FAERS Safety Report 6149344-6 (Version None)
Quarter: 2009Q2

REPORT INFORMATION
  Report Type: 
  Country: None (occurrence: None)
  Receive Date: 20090406
  Receipt Date: 20090406
  Transmission Date: 20091009
  Serious: Yes (Hospitalization)
  Sender: FDA-Public Use
  Company Number: None

PATIENT
  Age: 6 Year
  Sex: Male
  Weight: 25 kg

DRUGS (2)
  1. FOSPHENYTOIN [Suspect]
     Indication: CONVULSION
     Dosage: 500MG -20MG/KG- ONCE IV BOLUS
     Route: 040
     Dates: start: 20081127, end: 20081127
  2. LORAZEPAM [Suspect]
     Indication: CONVULSION
     Dosage: 2MG ONCE IV BOLUS
     Route: 040
     Dates: start: 20081127, end: 20081127

REACTIONS (3)
  - CONDITION AGGRAVATED [None]
  - CONVULSION [None]
  - OXYGEN SATURATION DECREASED [None]
